FAERS Safety Report 14394597 (Version 3)
Quarter: 2018Q4

REPORT INFORMATION
  Report Type: Report from Study
  Country: US (occurrence: US)
  Receive Date: 20180116
  Receipt Date: 20181112
  Transmission Date: 20190204
  Serious: Yes (Death)
  Sender: FDA-Public Use
  Company Number: US-PFIZER INC-2014072008

PATIENT
  Age: 53 Year
  Sex: Male
  Weight: 79 kg

DRUGS (17)
  1. MICAFUNGIN. [Concomitant]
     Active Substance: MICAFUNGIN SODIUM
     Dosage: 100 MG, EVERY 24 HRS
     Route: 042
  2. PIPERACILLIN. [Concomitant]
     Active Substance: PIPERACILLIN SODIUM
     Dosage: 3.375 MG, EVERY 8 HOURS
     Route: 042
  3. URSODIOL. [Concomitant]
     Active Substance: URSODIOL
     Dosage: 500 MG, 2X/DAY; ROUTE - NG TUBE
  4. INOTUZUMAB OZOGAMICIN [Suspect]
     Active Substance: INOTUZUMAB OZOGAMICIN
     Indication: ACUTE LYMPHOCYTIC LEUKAEMIA
     Dosage: 0.5 MG/M2, WEEKLY IN 3-4 WEEK CYCLES, (3 WEEKLY DOSES IN 28 DAY CYCLES)
     Dates: start: 20131018, end: 20131204
  5. INSULIN GLARGINE [Concomitant]
     Active Substance: INSULIN GLARGINE
     Dosage: 10 IU, 2X/DAY
     Route: 058
  6. LACTULOSE. [Concomitant]
     Active Substance: LACTULOSE
     Dosage: 20 G, 3X/DAY; ROUTE - PER NG TUBE
  7. CYTOXAN [Suspect]
     Active Substance: CYCLOPHOSPHAMIDE
     Indication: BONE MARROW CONDITIONING REGIMEN
     Dosage: 60 MG/KG, UNK
     Dates: start: 20140131
  8. GANCICLOVIR. [Concomitant]
     Active Substance: GANCICLOVIR
     Dosage: 200 MG, EVERY 24 HRS
     Route: 042
  9. ONDANSETRON [Concomitant]
     Active Substance: ONDANSETRON
     Dosage: 8 MG, EVERY 8 HOURS
     Route: 042
  10. NEUPOGEN [Concomitant]
     Active Substance: FILGRASTIM
     Dosage: 480 UG, DAILY
     Route: 058
  11. GLUTAMINE SUPPLEMENT [Concomitant]
     Dosage: 15 G, 2X/DAY; ROUTE - PER NG TUBE
  12. PHYTONADIONE. [Concomitant]
     Active Substance: PHYTONADIONE
     Dosage: 5 MG, 1X/DAY
     Route: 042
  13. CYTOXAN [Suspect]
     Active Substance: CYCLOPHOSPHAMIDE
     Dosage: 60 MG/KG, UNK
     Dates: start: 20140201
  14. INSULIN LISPRO [Concomitant]
     Active Substance: INSULIN LISPRO
     Dosage: 3-18 UNITS, EVERY 4 HOURS
     Route: 058
  15. METHYLPREDNISOLONE. [Concomitant]
     Active Substance: METHYLPREDNISOLONE
     Dosage: 40 MG, EVERY 12 HOURS
     Route: 042
  16. PANTOPRAZOLE [Concomitant]
     Active Substance: PANTOPRAZOLE
     Dosage: 40 MG, EVERY 12 HOURS
     Route: 042
  17. RIFAXIMIN. [Concomitant]
     Active Substance: RIFAXIMIN
     Dosage: 550 MG, 2X/DAY
     Route: 048

REACTIONS (2)
  - Venoocclusive liver disease [Fatal]
  - Hepatic failure [Fatal]

NARRATIVE: CASE EVENT DATE: 20140219
